FAERS Safety Report 9290347 (Version 3)
Quarter: 2013Q2

REPORT INFORMATION
  Report Type: Spontaneous
  Country: US (occurrence: US)
  Receive Date: 20130515
  Receipt Date: 20130617
  Transmission Date: 20140414
  Serious: Yes (Hospitalization)
  Sender: FDA-Public Use
  Company Number: US-ELI_LILLY_AND_COMPANY-US201305002577

PATIENT
  Sex: Female

DRUGS (2)
  1. FORTEO [Suspect]
     Indication: OSTEOPOROSIS
     Dosage: UNK, QD
     Dates: start: 2012
  2. FORTEO [Suspect]
     Dosage: UNK, QD

REACTIONS (3)
  - Magnesium deficiency [Unknown]
  - Incorrect dose administered [Unknown]
  - Incorrect storage of drug [Unknown]
